FAERS Safety Report 5129287-7 (Version None)
Quarter: 2006Q4

REPORT INFORMATION
  Report Type: 
  Country: None (occurrence: None)
  Receive Date: 20061018
  Receipt Date: 20060714
  Transmission Date: 20070319
  Serious: Yes (Death, Hospitalization, Other)
  Sender: FDA-Public Use
  Company Number: DE-AVENTIS-200612081DE

PATIENT
  Age: 46 Year
  Sex: Female
  Weight: 54 kg

DRUGS (2)
  1. TAXOTERE [Suspect]
     Indication: BREAST CANCER METASTATIC
     Route: 042
     Dates: start: 20060501, end: 20060701
  2. BONDRONAT [Concomitant]
     Indication: METASTASES TO BONE
     Route: 042
     Dates: start: 20060301, end: 20060701

REACTIONS (2)
  - ALVEOLITIS [None]
  - PNEUMONITIS [None]
